FAERS Safety Report 5467547-0 (Version None)
Quarter: 2007Q3

REPORT INFORMATION
  Report Type: 
  Country: None (occurrence: None)
  Receive Date: 20070925
  Receipt Date: 20070924
  Transmission Date: 20080115
  Serious: No
  Sender: FDA-Public Use
  Company Number: US-BOEHRINGER INGELHEIM PHARMACEUTICALS, INC.-2006-BP-10972BP

PATIENT
  Sex: Male

DRUGS (17)
  1. MIRAPEX [Suspect]
     Indication: PARKINSON'S DISEASE
     Route: 048
     Dates: start: 20020329, end: 20040901
  2. SINEMET [Concomitant]
     Indication: PARKINSON'S DISEASE
     Dates: start: 19991001
  3. ELDEPRYL [Concomitant]
     Indication: PARKINSON'S DISEASE
     Dates: start: 19991201
  4. AMANTADINE HCL [Concomitant]
     Indication: PARKINSON'S DISEASE
     Dates: start: 20040201, end: 20050801
  5. REQUIP [Concomitant]
     Indication: PARKINSON'S DISEASE
     Dates: start: 20041001
  6. COMTAN [Concomitant]
     Indication: PARKINSON'S DISEASE
     Dates: start: 20050203
  7. STALEVO 100 [Concomitant]
     Indication: PARKINSON'S DISEASE
     Dates: start: 20040320, end: 20040601
  8. CARBIDOPA AND LEVODOPA [Concomitant]
     Indication: PARKINSON'S DISEASE
     Dates: start: 20010112
  9. GEMFIBROZIL [Concomitant]
     Dates: start: 20040315
  10. VIAGRA [Concomitant]
     Dates: start: 20040301, end: 20050201
  11. KLONOPIN [Concomitant]
     Dates: start: 20030401, end: 20040805
  12. DIET PILL WITH EPHEDRA [Concomitant]
     Dates: start: 20030403
  13. TOPAMAX [Concomitant]
     Dates: start: 20040715
  14. ACETAMINOPHEN AND HYDROCODONE BITARTRATE [Concomitant]
     Dates: start: 20051201
  15. LEXAPRO [Concomitant]
     Dates: start: 20060201
  16. PROTONIX [Concomitant]
     Dates: start: 20060901, end: 20061201
  17. TYLENOL (CAPLET) [Concomitant]
     Indication: PAIN
     Dates: start: 20040101

REACTIONS (11)
  - ANXIETY [None]
  - DEPRESSION [None]
  - DISTURBANCE IN ATTENTION [None]
  - EMOTIONAL DISTRESS [None]
  - FEAR [None]
  - HEADACHE [None]
  - OBSESSIVE-COMPULSIVE DISORDER [None]
  - PAIN [None]
  - PATHOLOGICAL GAMBLING [None]
  - STRESS [None]
  - SYNCOPE [None]
